FAERS Safety Report 16721601 (Version 1)
Quarter: 2019Q3

REPORT INFORMATION
  Report Type: Spontaneous
  Country: US (occurrence: US)
  Receive Date: 20190820
  Receipt Date: 20190820
  Transmission Date: 20191005
  Serious: Yes (Death)
  Sender: FDA-Public Use
  Company Number: US-TEVA-2019-US-1093565

PATIENT
  Age: 22 Month
  Sex: Female

DRUGS (1)
  1. DOXORUBICIN [Suspect]
     Active Substance: DOXORUBICIN
     Indication: ATYPICAL TERATOID/RHABDOID TUMOUR OF CNS
     Route: 065

REACTIONS (6)
  - Brain oedema [Fatal]
  - Arrhythmia [Fatal]
  - Hyponatraemia [Fatal]
  - Brain herniation [Fatal]
  - Acute respiratory failure [Fatal]
  - Seizure [Fatal]
